FAERS Safety Report 9107261 (Version 2)
Quarter: 2013Q2

REPORT INFORMATION
  Report Type: Other
  Country: IT (occurrence: IT)
  Receive Date: 20130221
  Receipt Date: 20130409
  Transmission Date: 20140414
  Serious: Yes (Hospitalization, Other)
  Sender: FDA-Public Use
  Company Number: IT-RB-048045-12

PATIENT
  Sex: 0

DRUGS (2)
  1. BUPRENORPHINE [Suspect]
     Indication: DRUG DEPENDENCE
     Route: 064
  2. BUPRENORPHINE [Suspect]
     Dosage: BEGAN AT 3RD MONTH OF GESTATION
     Route: 064

REACTIONS (12)
  - Foetal exposure during pregnancy [Recovered/Resolved]
  - Premature baby [Recovered/Resolved]
  - Cerebral palsy [Unknown]
  - Failure to thrive [Unknown]
  - Muscular dystrophy [Unknown]
  - Muscular weakness [Unknown]
  - Epilepsy [Unknown]
  - Toxicity to various agents [Recovered/Resolved]
  - Apnoea neonatal [Recovered/Resolved]
  - Bradycardia neonatal [Recovered/Resolved]
  - Convulsion neonatal [Unknown]
  - Drug withdrawal syndrome neonatal [Recovered/Resolved]
